FAERS Safety Report 5659466-1 (Version None)
Quarter: 2008Q1

REPORT INFORMATION
  Report Type: 
  Country: None (occurrence: None)
  Receive Date: 20080311
  Receipt Date: 20080229
  Transmission Date: 20080703
  Serious: Yes (Hospitalization)
  Sender: FDA-Public Use
  Company Number: US-NOVOPROD-272805

PATIENT
  Age: 76 Year
  Sex: Male
  Weight: 98.866 kg

DRUGS (6)
  1. NOVOLOG [Suspect]
     Indication: INSULIN-REQUIRING TYPE 2 DIABETES MELLITUS
     Dosage: UNK IU, TID
     Route: 058
     Dates: start: 20071201
  2. FUROSEMIDE [Concomitant]
     Indication: FLUID RETENTION
     Dosage: 40 MG, BID
     Route: 048
  3. FUROSEMIDE [Concomitant]
     Dosage: 120 MG, QD 80 IN AM + 40 MG IN PM
     Route: 048
     Dates: start: 20080219
  4. QUINAPRIL HCL [Concomitant]
     Indication: CARDIAC DISORDER
     Dosage: 1 TAB, QD
     Route: 048
  5. ATENOLOL [Concomitant]
     Indication: HYPERTENSION
     Dosage: 1 TAB, QD
     Route: 048
  6. GLYBURIDE [Concomitant]
     Dosage: 1 TAB, BID
     Route: 048

REACTIONS (4)
  - CHEST DISCOMFORT [None]
  - DYSPNOEA [None]
  - FLUID RETENTION [None]
  - WEIGHT INCREASED [None]
